FAERS Safety Report 19360230 (Version 1)
Quarter: 2021Q2

REPORT INFORMATION
  Report Type: Spontaneous
  Country: US (occurrence: US)
  Receive Date: 20210601
  Receipt Date: 20210601
  Transmission Date: 20210717
  Serious: Yes (Death, Life-Threatening, Other)
  Sender: FDA-Public Use
  Company Number: US-ACCORD-226415

PATIENT
  Age: 60 Year
  Sex: Male

DRUGS (5)
  1. PHENYLEPHRINE [Suspect]
     Active Substance: PHENYLEPHRINE HYDROCHLORIDE
     Indication: VENTRICULAR ARRHYTHMIA
  2. NOREPINEPHRINE. [Suspect]
     Active Substance: NOREPINEPHRINE
     Indication: SEPTIC SHOCK
  3. PHENYLEPHRINE [Suspect]
     Active Substance: PHENYLEPHRINE HYDROCHLORIDE
     Indication: LEFT VENTRICLE OUTFLOW TRACT OBSTRUCTION
  4. PHENYLEPHRINE [Suspect]
     Active Substance: PHENYLEPHRINE HYDROCHLORIDE
     Indication: ARRHYTHMIA SUPRAVENTRICULAR
  5. VASOPRESSIN. [Suspect]
     Active Substance: VASOPRESSIN
     Indication: SEPTIC SHOCK

REACTIONS (5)
  - Acute respiratory distress syndrome [Fatal]
  - Condition aggravated [Fatal]
  - Pulmonary oedema [Fatal]
  - Mitral valve incompetence [Fatal]
  - Hypotension [Fatal]
